FAERS Safety Report 8520471-9 (Version None)
Quarter: 2012Q3

REPORT INFORMATION
  Report Type: 
  Country: None (occurrence: None)
  Receive Date: 20120719
  Receipt Date: 20120709
  Transmission Date: 20120928
  Serious: Yes (Death)
  Sender: FDA-Public Use
  Company Number: US-PFIZER INC-2012172073

PATIENT
  Sex: Female

DRUGS (3)
  1. MORPHINE SULFATE (KADIAN) [Suspect]
     Dosage: 30 MG, 2X/DAY
     Route: 048
  2. AMBIEN [Suspect]
     Dosage: 5 MG, PRN
     Route: 048
  3. PERCOCET [Suspect]
     Dosage: 1 DF, 3X/DAY
     Route: 048

REACTIONS (2)
  - DEATH [None]
  - LOSS OF CONSCIOUSNESS [None]
